FAERS Safety Report 5061086-7 (Version None)
Quarter: 2006Q3

REPORT INFORMATION
  Report Type: 
  Country: None (occurrence: None)
  Receive Date: 20060719
  Receipt Date: 20060719
  Transmission Date: 20061208
  Serious: Yes (Other)
  Sender: FDA-Public Use
  Company Number: None

PATIENT
  Age: 75 Year
  Sex: Male
  Weight: 121.564 kg

DRUGS (10)
  1. AMIODARONE HCL [Suspect]
     Indication: ATRIAL FIBRILLATION
     Dosage: 200 MG DAILY PO
     Route: 048
     Dates: start: 20050816
  2. CLONAZEPAM [Concomitant]
  3. FLUNISOLIDE [Concomitant]
  4. FELODIPINE [Concomitant]
  5. LISINOPRIL [Concomitant]
  6. TAMSULOSIN HCL [Concomitant]
  7. LEVOTHYROXINE SODIUM [Concomitant]
  8. SIMVASTATIN [Concomitant]
  9. WARFARIN [Concomitant]
  10. LORATADINE [Concomitant]

REACTIONS (2)
  - HYPOTHYROIDISM [None]
  - MUSCULAR WEAKNESS [None]
